FAERS Safety Report 12061820 (Version 5)
Quarter: 2016Q1

REPORT INFORMATION
  Report Type: Report from Study
  Country: IT (occurrence: IT)
  Receive Date: 20160210
  Receipt Date: 20160322
  Transmission Date: 20160526
  Serious: Yes (Death, Hospitalization)
  Sender: FDA-Public Use
  Company Number: PHHO2016IT001753

PATIENT
  Age: 48 Year
  Sex: Female
  Weight: 74 kg

DRUGS (4)
  1. COMPARATOR FULVESTRANT [Suspect]
     Active Substance: FULVESTRANT
     Indication: BREAST CANCER
     Dosage: 500 MG, UNK
     Route: 030
     Dates: start: 20160127
  2. ZOMETA [Concomitant]
     Active Substance: ZOLEDRONIC ACID
     Indication: BONE PAIN
     Dosage: 4 MG, UNK
     Route: 042
     Dates: start: 20131212
  3. BKM120 [Suspect]
     Active Substance: BUPARLISIB HYDROCHLORIDE
     Indication: BREAST CANCER
     Dosage: 30 MG, BID
     Route: 048
     Dates: start: 20160127, end: 20160130
  4. PARACETAMOL [Suspect]
     Active Substance: ACETAMINOPHEN
     Indication: BONE PAIN
     Dosage: 1000 MG, UNK
     Route: 048
     Dates: start: 20160119

REACTIONS (4)
  - Musculoskeletal pain [Fatal]
  - Dyspnoea [Fatal]
  - Cardiac failure acute [Fatal]
  - Acute respiratory failure [Fatal]

NARRATIVE: CASE EVENT DATE: 20160131
